FAERS Safety Report 19768544 (Version 1)
Quarter: 2021Q3

REPORT INFORMATION
  Report Type: Spontaneous
  Country: DE (occurrence: DE)
  Receive Date: 20210831
  Receipt Date: 20210831
  Transmission Date: 20211014
  Serious: Yes (Hospitalization)
  Sender: FDA-Public Use
  Company Number: DE-MYLANLABS-2021M1056612

PATIENT
  Age: 12 Year
  Sex: Female
  Weight: 39 kg

DRUGS (7)
  1. IBUPROFEN. [Suspect]
     Active Substance: IBUPROFEN
     Indication: POLYARTHRITIS
     Dosage: 400 MILLIGRAM (1?1?1/2)
     Route: 048
     Dates: start: 20180601
  2. METHOTREXATE. [Suspect]
     Active Substance: METHOTREXATE
     Indication: POLYARTHRITIS
     Dosage: 15 MILLIGRAM, QW (DAILY DOSE: 15 MG MILLGRAM(S) EVERY WEEKS)
     Route: 058
     Dates: start: 20180601
  3. L?THYROX [Concomitant]
     Active Substance: LEVOTHYROXINE SODIUM
     Indication: HYPOTHYROIDISM
     Dosage: 50 MICROGRAM, QD (DAILY DOSE: 50 ?G MICROGRAM(S) EVERY DAYS)
     Route: 048
  4. FOLSAEURE [Concomitant]
     Active Substance: FOLIC ACID
     Indication: POLYARTHRITIS
     Dosage: 5 MILLIGRAM, QW (INTAKE SUNDAY)
     Route: 048
     Dates: start: 20180601
  5. VITAMIN D                          /00107901/ [Concomitant]
     Active Substance: ERGOCALCIFEROL
     Dosage: 1 MILLIGRAM, QD (DAILY DOSE: 1 MG MILLGRAM(S) EVERY DAYS)
     Route: 048
  6. PANTOPRAZOL                        /01263201/ [Concomitant]
     Active Substance: PANTOPRAZOLE
     Indication: GASTROINTESTINAL DISORDER PROPHYLAXIS
     Dosage: 40 MILLIGRAM, QD (START DATE: 20?AUG?2018)
     Route: 048
  7. PREDNISOLONE. [Suspect]
     Active Substance: PREDNISOLONE
     Indication: POLYARTHRITIS
     Dosage: 5 MILLIGRAM, QD (DAILY DOSE: 5 MG MILLGRAM(S) EVERY DAYS)
     Route: 048
     Dates: start: 20180601

REACTIONS (4)
  - Nausea [Recovering/Resolving]
  - Abdominal pain [Recovering/Resolving]
  - Vomiting [Recovering/Resolving]
  - Gastritis [Recovering/Resolving]

NARRATIVE: CASE EVENT DATE: 20180818
